FAERS Safety Report 4423739-0 (Version None)
Quarter: 2004Q3

REPORT INFORMATION
  Report Type: 
  Country: None (occurrence: None)
  Receive Date: 20040714
  Receipt Date: 20040422
  Transmission Date: 20050211
  Serious: Yes (Other)
  Sender: FDA-Public Use
  Company Number: HQWYE614527APR04

PATIENT
  Age: 47 Year
  Sex: Male
  Weight: 86.26 kg

DRUGS (3)
  1. ALAVERT [Suspect]
     Indication: HEADACHE
     Dosage: 1 TAB DAILY, ORAL
     Route: 048
     Dates: start: 20040420, end: 20040421
  2. ALAVERT [Suspect]
     Indication: SNEEZING
     Dosage: 1 TAB DAILY, ORAL
     Route: 048
     Dates: start: 20040420, end: 20040421
  3. PRILOSEC [Concomitant]

REACTIONS (4)
  - FEELING ABNORMAL [None]
  - FEELING DRUNK [None]
  - NAUSEA [None]
  - SOMNOLENCE [None]
